FAERS Safety Report 6026071-7 (Version None)
Quarter: 2009Q1

REPORT INFORMATION
  Report Type: 
  Country: None (occurrence: None)
  Receive Date: 20090102
  Receipt Date: 20081222
  Transmission Date: 20090719
  Serious: Yes (Other)
  Sender: FDA-Public Use
  Company Number: US-SANOFI-SYNTHELABO-A03200804815

PATIENT
  Sex: Female
  Weight: 94 kg

DRUGS (7)
  1. AVASTIN [Suspect]
     Indication: COLON CANCER
     Route: 042
  2. LEUCOVORIN CALCIUM [Suspect]
     Indication: COLON CANCER
     Route: 042
  3. FLUOROURACIL [Suspect]
     Indication: COLON CANCER
     Route: 042
  4. VICODIN ES [Concomitant]
     Indication: PAIN
     Dosage: 1 TO 2 BY ONCE EVERY 6 HOURS AS NEEDED
     Route: 048
     Dates: start: 20080112, end: 20080930
  5. CAMPTOSAR [Suspect]
     Indication: COLON CANCER
     Route: 042
  6. ELOXATIN [Suspect]
     Route: 042
  7. XELODA [Suspect]
     Indication: COLON CANCER
     Route: 048

REACTIONS (3)
  - EPISTAXIS [None]
  - NASAL DISORDER [None]
  - NASAL SEPTUM PERFORATION [None]
